FAERS Safety Report 7052615-2 (Version None)
Quarter: 2010Q4

REPORT INFORMATION
  Report Type: 
  Country: None (occurrence: None)
  Receive Date: 20101019
  Receipt Date: 20101013
  Transmission Date: 20110411
  Serious: Yes (Other)
  Sender: FDA-Public Use
  Company Number: US-PFIZER INC-2010130798

PATIENT
  Sex: Female
  Weight: 70 kg

DRUGS (2)
  1. CHANTIX [Suspect]
     Indication: SMOKING CESSATION THERAPY
     Dosage: 0.5 MG, DAILY
     Route: 048
     Dates: start: 20100913, end: 20100915
  2. CHANTIX [Suspect]
     Dosage: UNK
     Dates: start: 20101013

REACTIONS (3)
  - AGITATION [None]
  - BLOOD POTASSIUM DECREASED [None]
  - HYPOMANIA [None]
